FAERS Safety Report 10758753 (Version 4)
Quarter: 2015Q3

REPORT INFORMATION
  Report Type: Spontaneous
  Country: US (occurrence: US)
  Receive Date: 20150203
  Receipt Date: 20150717
  Transmission Date: 20151125
  Serious: Yes (Hospitalization, Other)
  Sender: FDA-Public Use
  Company Number: US-009507513-1502USA000582

PATIENT
  Sex: Female
  Weight: 68.27 kg

DRUGS (5)
  1. FOSAMAX [Suspect]
     Active Substance: ALENDRONATE SODIUM
     Indication: OSTEOPENIA
     Dosage: 10 MG, QD
     Route: 048
     Dates: start: 1997, end: 200305
  2. FOSAMAX [Suspect]
     Active Substance: ALENDRONATE SODIUM
     Indication: OSTEOPOROSIS
     Dosage: 70 MG, QW
     Route: 048
     Dates: start: 20030507, end: 20101227
  3. VITAMINS (UNSPECIFIED) [Concomitant]
     Active Substance: VITAMINS
     Dosage: UNK UNK, QD
     Dates: start: 1995
  4. ALENDRONATE SODIUM. [Suspect]
     Active Substance: ALENDRONATE SODIUM
     Indication: OSTEOPENIA
     Dosage: 70 MG, QW
     Route: 048
     Dates: start: 20080314, end: 201210
  5. ALENDRONATE SODIUM. [Suspect]
     Active Substance: ALENDRONATE SODIUM
     Indication: OSTEOPOROSIS

REACTIONS (26)
  - Medical device removal [Unknown]
  - Hysterectomy [Unknown]
  - Dizziness [Unknown]
  - Intramedullary rod insertion [Unknown]
  - Malignant melanoma [Unknown]
  - Foot fracture [Unknown]
  - Essential hypertension [Unknown]
  - Foot fracture [Unknown]
  - Transient ischaemic attack [Recovered/Resolved]
  - Hypotension [Unknown]
  - Gastrooesophageal reflux disease [Unknown]
  - Squamous cell carcinoma of skin [Unknown]
  - Foot fracture [Unknown]
  - Hypercholesterolaemia [Unknown]
  - Hand fracture [Unknown]
  - Femur fracture [Unknown]
  - Cerebral infarction [Recovered/Resolved]
  - Cataract [Unknown]
  - Femur fracture [Unknown]
  - Fracture nonunion [Unknown]
  - Clavicle fracture [Unknown]
  - Upper limb fracture [Unknown]
  - Rib fracture [Unknown]
  - Oedema peripheral [Unknown]
  - Arthralgia [Unknown]
  - Intramedullary rod insertion [Unknown]

NARRATIVE: CASE EVENT DATE: 2000
